FAERS Safety Report 17977547 (Version 1)
Quarter: 2020Q3

REPORT INFORMATION
  Report Type: Spontaneous
  Country: US (occurrence: US)
  Receive Date: 20200703
  Receipt Date: 20200703
  Transmission Date: 20201103
  Serious: No
  Sender: FDA-Public Use
  Company Number: US-AMGEN-USASP2020105122

PATIENT
  Sex: Female

DRUGS (3)
  1. NEUPOGEN [Suspect]
     Active Substance: FILGRASTIM
     Indication: NEUTROPENIA
     Dosage: 300 MICROGRAM, QD (FOUR TIMES A WEEK)
     Route: 065
  2. NEUPOGEN [Suspect]
     Active Substance: FILGRASTIM
     Dosage: 300 MICROGRAM, QD (FOUR TIMES A WEEK)
     Route: 065
  3. LISINOPRIL. [Concomitant]
     Active Substance: LISINOPRIL
     Indication: BLOOD PRESSURE ABNORMAL
     Dosage: 15 MILLIGRAM, QD

REACTIONS (5)
  - Oral mucosal erythema [Not Recovered/Not Resolved]
  - Pharyngitis streptococcal [Not Recovered/Not Resolved]
  - Inappropriate schedule of product administration [Unknown]
  - Pharyngeal ulceration [Not Recovered/Not Resolved]
  - Oropharyngeal pain [Not Recovered/Not Resolved]
